FAERS Safety Report 8605586-9 (Version None)
Quarter: 2012Q3

REPORT INFORMATION
  Report Type: 
  Country: None (occurrence: None)
  Receive Date: 20120820
  Receipt Date: 20120807
  Transmission Date: 20120928
  Serious: Yes (Hospitalization, Other)
  Sender: FDA-Public Use
  Company Number: US-CELGENEUS-163-50794-12072618

PATIENT
  Sex: Male

DRUGS (43)
  1. HYDROCORTISONE [Concomitant]
     Dosage: 1 APPL
     Route: 061
  2. HYDROCORTISONE SOD SUCC [Concomitant]
     Dosage: 25 MILLIGRAM
     Route: 041
  3. MAGNESIUM SULFATE [Concomitant]
     Dosage: 8 MILLIEQUIVALENTS
     Route: 041
  4. ONDANSETRON HYDROCHLORIDE [Concomitant]
     Dosage: 8 MILLIGRAM
     Route: 048
  5. PREDNISONE TAB [Concomitant]
     Indication: POLYMYALGIA RHEUMATICA
     Dosage: 5 MILLIGRAM
     Route: 048
  6. SENNOSIDES-DOCUSATE SODIUM [Concomitant]
     Dosage: 1 TABLET
     Route: 048
  7. SODIUM CHLORIDE [Concomitant]
     Dosage: 1000 MILLILITER
     Route: 041
  8. TRAMADOL HCL [Concomitant]
     Dosage: 50 MILLIGRAM
     Route: 048
  9. DIPHENOXYLATE HCL W/ ATROPINE SULFATE [Concomitant]
     Dosage: 1 TABLET
     Route: 048
  10. COREG [Concomitant]
     Dosage: 3.125 MILLIGRAM
     Route: 048
  11. SODIUM CHLORIDE [Concomitant]
     Dosage: 1000 MILLILITER
     Route: 041
  12. SODIUM CHLORIDE [Concomitant]
     Dosage: 10 MILLILITER
     Route: 041
  13. AMINOCAPROIC ACID [Concomitant]
     Dosage: 10 MILLILITER
     Route: 048
  14. COREG [Concomitant]
     Dosage: 12.5 MILLIGRAM
     Route: 048
     Dates: start: 20120716
  15. ACETAMINOPHEN [Concomitant]
     Dosage: 650 MILLIGRAM
     Route: 048
  16. FLUCONAZOLE [Concomitant]
     Dosage: 200 MILLIGRAM
     Route: 048
  17. ISOSORBIDE MONONITRATE [Concomitant]
     Dosage: 30 MILLIGRAM
     Route: 048
  18. LEVOFLOXACIN [Concomitant]
     Dosage: 500 MILLIGRAM
     Route: 048
  19. LORATADINE [Concomitant]
     Dosage: 10 MILLIGRAM
     Route: 048
  20. PIPERACILLIN AND TAZOBACTAM [Concomitant]
     Dosage: 13.5 MILLIGRAM
     Route: 041
  21. VALACYCLOVIR HYDROCHLORIDE [Concomitant]
     Dosage: 250 MILLIGRAM
     Route: 048
  22. HYDRALAZINE HCL [Concomitant]
     Dosage: 10 MILLIGRAM
     Route: 041
  23. TEMAZEPAM [Concomitant]
     Dosage: 15 MILLIGRAM
     Route: 048
  24. CALCIUM CARBONATE [Concomitant]
     Dosage: 3000 MILLIGRAM
     Route: 048
  25. CARVEDILOL [Concomitant]
     Dosage: 12.5 MILLIGRAM
     Route: 048
  26. GUAIFENESIN AND DEXTROMETHORPHAN HBR [Concomitant]
     Dosage: 10 MILLILITER
     Route: 048
  27. MAGNESIUM OXIDE MG SUPPLEMENT [Concomitant]
     Dosage: 1000 MILLIGRAM
     Route: 048
  28. MULTIPLE VITAMIN [Concomitant]
     Dosage: 1 TABLET
     Route: 048
  29. OYSTER SHELL CALCIUM [Concomitant]
     Dosage: 1000 MILLIGRAM
     Route: 048
  30. AMIODARONE HCL [Concomitant]
     Dosage: 450 MILLIGRAM
     Route: 041
     Dates: end: 20120725
  31. ATORVASTATIN CALCIUM [Concomitant]
     Dosage: 10 MILLIGRAM
     Route: 048
  32. NIFEDIPINE [Concomitant]
     Indication: ATRIAL FIBRILLATION
     Route: 065
  33. ALUM + MAG HYDROX-SIMETHICONE [Concomitant]
     Dosage: 15 MILLILITER
     Route: 048
  34. PANTOPRAZOLE SODIUM [Concomitant]
     Dosage: 40 MILLIGRAM
     Route: 048
  35. TRIAMCINOLONE ACETONIDE [Concomitant]
     Dosage: 1 APPL
     Route: 061
  36. BISMUTH [Concomitant]
     Dosage: 262 MILLIGRAM
     Route: 048
  37. VIDAZA [Suspect]
     Dosage: 75 MILLIGRAM/SQ. METER
     Route: 041
     Dates: start: 20120615, end: 20120621
  38. SORAFENIB [Suspect]
     Dosage: 400 MILLIGRAM
     Route: 048
     Dates: start: 20120615, end: 20120621
  39. CHLORHEXIDINE GLUCONATE [Concomitant]
     Dosage: 30 MILLILITER
     Route: 065
  40. FINASTERIDE [Concomitant]
     Dosage: 5 MILLIGRAM
     Route: 048
  41. SENNOSIDES-DOCUSATE SODIUM [Concomitant]
     Dosage: 2 TABLET
     Route: 048
  42. SODIUM CHLORIDE [Concomitant]
     Dosage: 10 MILLILITER
     Route: 041
  43. VALACYCLOVIR HYDROCHLORIDE [Concomitant]
     Dosage: 500 MILLIGRAM
     Route: 048

REACTIONS (2)
  - ATRIAL FIBRILLATION [None]
  - ELECTROCARDIOGRAM QT PROLONGED [None]
